FAERS Safety Report 13001309 (Version 3)
Quarter: 2018Q1

REPORT INFORMATION
  Report Type: Spontaneous
  Country: US (occurrence: US)
  Receive Date: 20161206
  Receipt Date: 20180221
  Transmission Date: 20180508
  Serious: No
  Sender: FDA-Public Use
  Company Number: US-PFIZER INC-2016563747

PATIENT
  Age: 68 Year
  Sex: Female
  Weight: 86.1 kg

DRUGS (1)
  1. LYRICA [Suspect]
     Active Substance: PREGABALIN
     Indication: PARAESTHESIA
     Dosage: 150 MG, 3X/DAY
     Route: 048

REACTIONS (7)
  - Pain in extremity [Recovered/Resolved]
  - Dyskinesia [Recovered/Resolved]
  - Muscle spasms [Unknown]
  - Tremor [Recovered/Resolved]
  - Formication [Unknown]
  - Pruritus [Recovered/Resolved]
  - Drug dose omission [Recovered/Resolved]
